FAERS Safety Report 5205299-X (Version None)
Quarter: 2006Q4

REPORT INFORMATION
  Report Type: 
  Country: None (occurrence: None)
  Receive Date: 20061027
  Receipt Date: 20060217
  Transmission Date: 20070319
  Serious: Yes (Other)
  Sender: FDA-Public Use
  Company Number: HQWYE163116MAR05

PATIENT
  Age: 68 Year
  Sex: Female
  Weight: 63.56 kg

DRUGS (2)
  1. PREMARIN [Suspect]
     Dosage: ORAL
     Route: 048
     Dates: start: 19800101, end: 20000101
  2. CYCRIN [Suspect]

REACTIONS (1)
  - BREAST CANCER [None]
